FAERS Safety Report 23706740 (Version 1)
Quarter: 2024Q2

REPORT INFORMATION
  Report Type: Report from Study
  Country: CA (occurrence: None)
  Receive Date: 20240404
  Receipt Date: 20240404
  Transmission Date: 20240716
  Serious: Yes (Hospitalization)
  Sender: FDA-Public Use
  Company Number: CA-PFIZER INC-PV202400042162

PATIENT
  Age: 7 Year
  Sex: Female
  Weight: 29.1 kg

DRUGS (6)
  1. METHOTREXATE [Suspect]
     Active Substance: METHOTREXATE
     Indication: Acute lymphocytic leukaemia
     Dates: start: 20220126, end: 20240312
  2. METHOTREXATE [Suspect]
     Active Substance: METHOTREXATE
     Dosage: ONCE
     Dates: start: 20220401, end: 20240312
  3. VINCRISTINE SULFATE [Suspect]
     Active Substance: VINCRISTINE SULFATE
     Indication: Acute lymphocytic leukaemia
     Dosage: ONCE
     Dates: start: 20220401
  4. PREDNISONE [Suspect]
     Active Substance: PREDNISONE
     Indication: Acute lymphocytic leukaemia
     Dates: start: 20230119
  5. MERCAPTOPURINE [Suspect]
     Active Substance: MERCAPTOPURINE
     Indication: Acute lymphocytic leukaemia
     Dates: start: 20230401, end: 20240312
  6. RUXOLITINIB [Suspect]
     Active Substance: RUXOLITINIB
     Indication: Acute lymphocytic leukaemia
     Dates: start: 20220825, end: 20240312

REACTIONS (4)
  - Febrile neutropenia [Recovered/Resolved]
  - Parainfluenzae virus infection [Unknown]
  - Upper respiratory tract infection [Unknown]
  - Oxygen saturation decreased [Unknown]

NARRATIVE: CASE EVENT DATE: 20240312
